FAERS Safety Report 7741629-2 (Version None)
Quarter: 2011Q3

REPORT INFORMATION
  Report Type: 
  Country: None (occurrence: None)
  Receive Date: 20110911
  Receipt Date: 20110831
  Transmission Date: 20111222
  Serious: Yes (Hospitalization)
  Sender: FDA-Public Use
  Company Number: US-CELGENEUS-163-21880-11090115

PATIENT
  Sex: Female
  Weight: 103.51 kg

DRUGS (17)
  1. HUMALOG [Concomitant]
     Route: 065
  2. LASIX [Concomitant]
     Route: 065
  3. LISINOPRIL [Concomitant]
     Route: 065
  4. LOVAZA [Concomitant]
     Route: 065
  5. PREDNISONE [Concomitant]
     Route: 065
  6. ARANESP [Concomitant]
     Route: 065
  7. FERROUS SULFATE TAB [Concomitant]
     Route: 065
  8. COMPAZINE [Concomitant]
     Route: 065
  9. CRESTOR [Concomitant]
     Route: 065
  10. LANTUS [Concomitant]
     Route: 065
  11. REVLIMID [Suspect]
     Dosage: 5 MILLIGRAM
     Route: 048
     Dates: start: 20110802
  12. ISOSORB [Concomitant]
     Route: 065
  13. PROTONIX [Concomitant]
     Route: 065
  14. PLENDIL [Concomitant]
     Route: 065
  15. ASPIRIN [Concomitant]
     Route: 065
  16. B COMPLETE [Concomitant]
     Route: 065
  17. GLUCOPHAGE [Concomitant]
     Route: 065

REACTIONS (1)
  - HEART RATE IRREGULAR [None]
